FAERS Safety Report 16809267 (Version 1)
Quarter: 2019Q3

REPORT INFORMATION
  Report Type: Spontaneous
  Country: DK (occurrence: DK)
  Receive Date: 20190916
  Receipt Date: 20190916
  Transmission Date: 20191005
  Serious: Yes (Hospitalization)
  Sender: FDA-Public Use
  Company Number: PHHY2019DK212150

PATIENT
  Age: 73 Year
  Sex: Female

DRUGS (2)
  1. OXAPAX [Suspect]
     Active Substance: OXAZEPAM
     Indication: SEDATIVE THERAPY
     Dosage: 7.5 MG, UNK
     Route: 048
     Dates: start: 20180512, end: 20180716
  2. SERTRONE [Suspect]
     Active Substance: SERTRALINE HYDROCHLORIDE
     Indication: ANXIETY
     Dosage: 25 MG, UNK
     Route: 048
     Dates: start: 20180507, end: 20180621

REACTIONS (11)
  - Limb discomfort [Unknown]
  - Anxiety [Recovering/Resolving]
  - Restlessness [Not Recovered/Not Resolved]
  - Hyperhidrosis [Unknown]
  - Increased appetite [Unknown]
  - Ear pain [Unknown]
  - Tremor [Unknown]
  - Paraesthesia [Not Recovered/Not Resolved]
  - Derealisation [Unknown]
  - Weight increased [Unknown]
  - Headache [Unknown]

NARRATIVE: CASE EVENT DATE: 201805
